FAERS Safety Report 20178153 (Version 3)
Quarter: 2022Q1

REPORT INFORMATION
  Report Type: Spontaneous
  Country: CA (occurrence: CA)
  Receive Date: 20211213
  Receipt Date: 20220321
  Transmission Date: 20220424
  Serious: Yes (Other)
  Sender: FDA-Public Use
  Company Number: CA-SA-SAC20211209001148

PATIENT
  Sex: Female

DRUGS (177)
  1. TRIAMCINOLONE ACETONIDE [Suspect]
     Active Substance: TRIAMCINOLONE ACETONIDE
     Indication: Product used for unknown indication
     Dosage: UNK
  2. TRIAMCINOLONE ACETONIDE [Suspect]
     Active Substance: TRIAMCINOLONE ACETONIDE
     Dosage: UNK
     Route: 014
  3. TRIAMCINOLONE ACETONIDE [Suspect]
     Active Substance: TRIAMCINOLONE ACETONIDE
  4. TRIAMCINOLONE ACETONIDE [Suspect]
     Active Substance: TRIAMCINOLONE ACETONIDE
     Dosage: UNKN
  5. TRIAMCINOLONE ACETONIDE [Suspect]
     Active Substance: TRIAMCINOLONE ACETONIDE
     Dosage: UNKNOWN
  6. AMOXICILLIN TRIHYDRATE [Suspect]
     Active Substance: AMOXICILLIN
     Indication: Product used for unknown indication
     Dosage: UNK
  7. AMOXICILLIN TRIHYDRATE [Suspect]
     Active Substance: AMOXICILLIN
  8. AMOXICILLIN TRIHYDRATE [Suspect]
     Active Substance: AMOXICILLIN
  9. AMOXICILLIN TRIHYDRATE [Suspect]
     Active Substance: AMOXICILLIN
  10. BUDESONIDE [Suspect]
     Active Substance: BUDESONIDE
     Indication: Product used for unknown indication
     Dosage: UNK
     Route: 048
  11. BUDESONIDE [Suspect]
     Active Substance: BUDESONIDE
  12. BUDESONIDE [Suspect]
     Active Substance: BUDESONIDE
     Dosage: NOT SPECIFIED
     Route: 048
  13. BUDESONIDE [Suspect]
     Active Substance: BUDESONIDE
     Route: 048
  14. BISACODYL [Suspect]
     Active Substance: BISACODYL
     Indication: Product used for unknown indication
     Dosage: UNK
  15. BISACODYL [Suspect]
     Active Substance: BISACODYL
  16. BISACODYL [Suspect]
     Active Substance: BISACODYL
     Dosage: NOT SPECIFIED
  17. BISACODYL [Suspect]
     Active Substance: BISACODYL
  18. CETIRIZINE HYDROCHLORIDE [Suspect]
     Active Substance: CETIRIZINE HYDROCHLORIDE
     Indication: Product used for unknown indication
     Dosage: UNK
  19. CETIRIZINE HYDROCHLORIDE [Suspect]
     Active Substance: CETIRIZINE HYDROCHLORIDE
  20. CETIRIZINE HYDROCHLORIDE [Suspect]
     Active Substance: CETIRIZINE HYDROCHLORIDE
  21. CETIRIZINE HYDROCHLORIDE [Suspect]
     Active Substance: CETIRIZINE HYDROCHLORIDE
  22. ALPRAZOLAM [Suspect]
     Active Substance: ALPRAZOLAM
     Indication: Product used for unknown indication
     Dosage: UNK
  23. ALPRAZOLAM [Suspect]
     Active Substance: ALPRAZOLAM
  24. ALPRAZOLAM [Suspect]
     Active Substance: ALPRAZOLAM
  25. ALPRAZOLAM [Suspect]
     Active Substance: ALPRAZOLAM
  26. ACETAMINOPHEN [Suspect]
     Active Substance: ACETAMINOPHEN
     Indication: Product used for unknown indication
     Dosage: UNK
  27. HYDROCHLOROTHIAZIDE [Suspect]
     Active Substance: HYDROCHLOROTHIAZIDE
     Indication: Product used for unknown indication
     Dosage: UNK
  28. HYDROCHLOROTHIAZIDE [Suspect]
     Active Substance: HYDROCHLOROTHIAZIDE
  29. HYDROCHLOROTHIAZIDE [Suspect]
     Active Substance: HYDROCHLOROTHIAZIDE
  30. HYDROCHLOROTHIAZIDE [Suspect]
     Active Substance: HYDROCHLOROTHIAZIDE
  31. ATORVASTATIN CALCIUM [Suspect]
     Active Substance: ATORVASTATIN CALCIUM
     Indication: Product used for unknown indication
     Dosage: UNK
  32. ATORVASTATIN CALCIUM [Suspect]
     Active Substance: ATORVASTATIN CALCIUM
  33. ATORVASTATIN CALCIUM [Suspect]
     Active Substance: ATORVASTATIN CALCIUM
     Dosage: NOT SPECIFIED
  34. ATORVASTATIN CALCIUM [Suspect]
     Active Substance: ATORVASTATIN CALCIUM
  35. MESALAMINE [Suspect]
     Active Substance: MESALAMINE
     Indication: Product used for unknown indication
     Dosage: UNK
  36. MESALAMINE [Suspect]
     Active Substance: MESALAMINE
  37. MESALAMINE [Suspect]
     Active Substance: MESALAMINE
     Dosage: NOT SPECIFIED
  38. MESALAMINE [Suspect]
     Active Substance: MESALAMINE
     Route: 065
  39. AZITHROMYCIN [Suspect]
     Active Substance: AZITHROMYCIN
     Indication: Product used for unknown indication
     Dosage: UNK
  40. AZITHROMYCIN [Suspect]
     Active Substance: AZITHROMYCIN
  41. AZITHROMYCIN [Suspect]
     Active Substance: AZITHROMYCIN
     Dosage: NOT SPECIFIED
  42. AZITHROMYCIN [Suspect]
     Active Substance: AZITHROMYCIN
  43. BETAMETHASONE DIPROPIONATE [Suspect]
     Active Substance: BETAMETHASONE DIPROPIONATE
     Indication: Product used for unknown indication
     Dosage: UNK
  44. BETAMETHASONE DIPROPIONATE [Suspect]
     Active Substance: BETAMETHASONE DIPROPIONATE
  45. BETAMETHASONE DIPROPIONATE [Suspect]
     Active Substance: BETAMETHASONE DIPROPIONATE
     Dosage: NOT SPECIFIED
  46. BETAMETHASONE DIPROPIONATE [Suspect]
     Active Substance: BETAMETHASONE DIPROPIONATE
  47. BETAMETHASONE VALERATE [Suspect]
     Active Substance: BETAMETHASONE VALERATE
     Indication: Product used for unknown indication
     Dosage: UNK
  48. BETAMETHASONE VALERATE [Suspect]
     Active Substance: BETAMETHASONE VALERATE
  49. BETAMETHASONE VALERATE [Suspect]
     Active Substance: BETAMETHASONE VALERATE
  50. BETAMETHASONE VALERATE [Suspect]
     Active Substance: BETAMETHASONE VALERATE
  51. CLARITHROMYCIN [Suspect]
     Active Substance: CLARITHROMYCIN
     Indication: Product used for unknown indication
     Dosage: UNK
  52. CLARITHROMYCIN [Suspect]
     Active Substance: CLARITHROMYCIN
  53. CLARITHROMYCIN [Suspect]
     Active Substance: CLARITHROMYCIN
     Dosage: NOT SPECIFIED
  54. CLARITHROMYCIN [Suspect]
     Active Substance: CLARITHROMYCIN
  55. CLARITHROMYCIN [Suspect]
     Active Substance: CLARITHROMYCIN
  56. SODIUM CHLORIDE [Suspect]
     Active Substance: SODIUM CHLORIDE
     Dosage: UNK
  57. SODIUM CHLORIDE [Suspect]
     Active Substance: SODIUM CHLORIDE
     Route: 065
  58. CLOTRIMAZOLE [Suspect]
     Active Substance: CLOTRIMAZOLE
     Indication: Product used for unknown indication
     Dosage: UNK
  59. CLOTRIMAZOLE [Suspect]
     Active Substance: CLOTRIMAZOLE
  60. CLOTRIMAZOLE [Suspect]
     Active Substance: CLOTRIMAZOLE
     Dosage: NOT SPECIFIED
  61. CLOTRIMAZOLE [Suspect]
     Active Substance: CLOTRIMAZOLE
  62. CLOTRIMAZOLE [Suspect]
     Active Substance: CLOTRIMAZOLE
  63. METRONIDAZOLE [Suspect]
     Active Substance: METRONIDAZOLE
     Indication: Product used for unknown indication
     Dosage: UNK
  64. METRONIDAZOLE [Suspect]
     Active Substance: METRONIDAZOLE
     Indication: Product used for unknown indication
     Dosage: UNK
  65. METRONIDAZOLE [Suspect]
     Active Substance: METRONIDAZOLE
     Dosage: NOT SPECIFIED
  66. DESONIDE [Suspect]
     Active Substance: DESONIDE
     Indication: Product used for unknown indication
     Dosage: UNK
  67. DESONIDE [Suspect]
     Active Substance: DESONIDE
  68. DESONIDE [Suspect]
     Active Substance: DESONIDE
     Dosage: NOT SPECIFIED
  69. DESONIDE [Suspect]
     Active Substance: DESONIDE
  70. DESONIDE [Suspect]
     Active Substance: DESONIDE
  71. DIPHENHYDRAMINE HYDROCHLORIDE [Suspect]
     Active Substance: DIPHENHYDRAMINE HYDROCHLORIDE
     Indication: Product used for unknown indication
     Dosage: UNK
  72. DIPHENHYDRAMINE HYDROCHLORIDE [Suspect]
     Active Substance: DIPHENHYDRAMINE HYDROCHLORIDE
  73. DIPHENHYDRAMINE HYDROCHLORIDE [Suspect]
     Active Substance: DIPHENHYDRAMINE HYDROCHLORIDE
  74. DIPHENHYDRAMINE HYDROCHLORIDE [Suspect]
     Active Substance: DIPHENHYDRAMINE HYDROCHLORIDE
  75. HYDROMORPHONE HYDROCHLORIDE [Suspect]
     Active Substance: HYDROMORPHONE HYDROCHLORIDE
     Indication: Product used for unknown indication
     Dosage: UNK
  76. HYDROMORPHONE HYDROCHLORIDE [Suspect]
     Active Substance: HYDROMORPHONE HYDROCHLORIDE
  77. HYDROMORPHONE HYDROCHLORIDE [Suspect]
     Active Substance: HYDROMORPHONE HYDROCHLORIDE
  78. HYDROMORPHONE HYDROCHLORIDE [Suspect]
     Active Substance: HYDROMORPHONE HYDROCHLORIDE
  79. MORPHINE SULFATE [Suspect]
     Active Substance: MORPHINE SULFATE
     Indication: Product used for unknown indication
     Dosage: UNK
  80. MORPHINE SULFATE [Suspect]
     Active Substance: MORPHINE SULFATE
  81. MORPHINE SULFATE [Suspect]
     Active Substance: MORPHINE SULFATE
     Dosage: NOT SPECIFIED
  82. MORPHINE SULFATE [Suspect]
     Active Substance: MORPHINE SULFATE
  83. FLUTICASONE FUROATE [Suspect]
     Active Substance: FLUTICASONE FUROATE
     Indication: Product used for unknown indication
     Dosage: UNK
  84. MUPIROCIN [Suspect]
     Active Substance: MUPIROCIN
     Indication: Product used for unknown indication
     Dosage: UNK
     Route: 061
  85. MUPIROCIN [Suspect]
     Active Substance: MUPIROCIN
  86. MUPIROCIN [Suspect]
     Active Substance: MUPIROCIN
     Route: 061
  87. MUPIROCIN [Suspect]
     Active Substance: MUPIROCIN
     Route: 061
  88. MUPIROCIN [Suspect]
     Active Substance: MUPIROCIN
  89. NADOLOL [Suspect]
     Active Substance: NADOLOL
     Indication: Product used for unknown indication
     Dosage: UNK
  90. NADOLOL [Suspect]
     Active Substance: NADOLOL
  91. NADOLOL [Suspect]
     Active Substance: NADOLOL
  92. NADOLOL [Suspect]
     Active Substance: NADOLOL
  93. NADOLOL [Suspect]
     Active Substance: NADOLOL
  94. NICOTINE [Suspect]
     Active Substance: NICOTINE
     Indication: Product used for unknown indication
     Dosage: UNK
  95. NICOTINE [Suspect]
     Active Substance: NICOTINE
  96. NICOTINE [Suspect]
     Active Substance: NICOTINE
     Dosage: NOT SPECIFIED
  97. NICOTINE [Suspect]
     Active Substance: NICOTINE
  98. NICOTINE [Suspect]
     Active Substance: NICOTINE
  99. PANTOPRAZOLE [Suspect]
     Active Substance: PANTOPRAZOLE
     Indication: Product used for unknown indication
     Dosage: UNK
  100. PANTOPRAZOLE [Suspect]
     Active Substance: PANTOPRAZOLE
  101. PANTOPRAZOLE [Suspect]
     Active Substance: PANTOPRAZOLE
     Dosage: NOT SPECIFIED
  102. PANTOPRAZOLE [Suspect]
     Active Substance: PANTOPRAZOLE
  103. PREDNISONE [Suspect]
     Active Substance: PREDNISONE
     Indication: Product used for unknown indication
     Dosage: UNK
  104. PREDNISONE [Suspect]
     Active Substance: PREDNISONE
  105. PREDNISONE [Suspect]
     Active Substance: PREDNISONE
     Dosage: NOT SPECIFIED
  106. PREDNISONE [Suspect]
     Active Substance: PREDNISONE
  107. PREDNISONE [Suspect]
     Active Substance: PREDNISONE
  108. PREGABALIN [Suspect]
     Active Substance: PREGABALIN
     Indication: Product used for unknown indication
     Dosage: UNK
  109. PREGABALIN [Suspect]
     Active Substance: PREGABALIN
  110. PREGABALIN [Suspect]
     Active Substance: PREGABALIN
  111. PREGABALIN [Suspect]
     Active Substance: PREGABALIN
  112. SIMVASTATIN [Suspect]
     Active Substance: SIMVASTATIN
     Indication: Product used for unknown indication
     Dosage: UNK
  113. SIMVASTATIN [Suspect]
     Active Substance: SIMVASTATIN
  114. SIMVASTATIN [Suspect]
     Active Substance: SIMVASTATIN
  115. SIMVASTATIN [Suspect]
     Active Substance: SIMVASTATIN
  116. SIMVASTATIN [Suspect]
     Active Substance: SIMVASTATIN
  117. CHOLECALCIFEROL [Suspect]
     Active Substance: CHOLECALCIFEROL
     Indication: Product used for unknown indication
     Dosage: UNK
  118. CHOLECALCIFEROL [Suspect]
     Active Substance: CHOLECALCIFEROL
  119. CHOLECALCIFEROL [Suspect]
     Active Substance: CHOLECALCIFEROL
  120. NICODERM CQ [Suspect]
     Active Substance: NICOTINE
     Indication: Product used for unknown indication
     Dosage: UNK
  121. NICODERM CQ [Suspect]
     Active Substance: NICOTINE
  122. NICODERM CQ [Suspect]
     Active Substance: NICOTINE
  123. NICODERM CQ [Suspect]
     Active Substance: NICOTINE
  124. NICODERM CQ [Suspect]
     Active Substance: NICOTINE
  125. GLYCERIN [Suspect]
     Active Substance: GLYCERIN
     Indication: Product used for unknown indication
     Dosage: UNK
     Route: 048
  126. GLYCERIN [Suspect]
     Active Substance: GLYCERIN
  127. GLYCERIN [Suspect]
     Active Substance: GLYCERIN
     Route: 048
  128. GLYCERIN [Suspect]
     Active Substance: GLYCERIN
     Route: 048
  129. GLYCERIN [Suspect]
     Active Substance: GLYCERIN
  130. ZINC OXIDE [Suspect]
     Active Substance: ZINC OXIDE
     Indication: Product used for unknown indication
     Dosage: NOT SPECIFIED
  131. ZINC OXIDE [Suspect]
     Active Substance: ZINC OXIDE
  132. ZINC OXIDE [Suspect]
     Active Substance: ZINC OXIDE
  133. TRIAMCINOLONE ACETONIDE [Suspect]
     Active Substance: TRIAMCINOLONE ACETONIDE
     Indication: Product used for unknown indication
     Dosage: UNK
     Route: 014
  134. TRIAMCINOLONE ACETONIDE [Suspect]
     Active Substance: TRIAMCINOLONE ACETONIDE
     Route: 014
  135. GRAMICIDIN\NEOMYCIN SULFATE\POLYMYXIN B SULFATE [Suspect]
     Active Substance: GRAMICIDIN\NEOMYCIN SULFATE\POLYMYXIN B SULFATE
     Indication: Product used for unknown indication
     Dosage: UNK
  136. GRAMICIDIN\NEOMYCIN SULFATE\POLYMYXIN B SULFATE [Suspect]
     Active Substance: GRAMICIDIN\NEOMYCIN SULFATE\POLYMYXIN B SULFATE
     Dosage: NOT SPECIFIED
  137. GRAMICIDIN\NEOMYCIN SULFATE\POLYMYXIN B SULFATE [Suspect]
     Active Substance: GRAMICIDIN\NEOMYCIN SULFATE\POLYMYXIN B SULFATE
  138. GRAMICIDIN\NEOMYCIN SULFATE\POLYMYXIN B SULFATE [Suspect]
     Active Substance: GRAMICIDIN\NEOMYCIN SULFATE\POLYMYXIN B SULFATE
  139. ADALIMUMAB [Suspect]
     Active Substance: ADALIMUMAB
     Indication: Product used for unknown indication
     Dosage: UNK
     Route: 058
  140. ADALIMUMAB [Suspect]
     Active Substance: ADALIMUMAB
  141. ADALIMUMAB [Suspect]
     Active Substance: ADALIMUMAB
     Route: 058
  142. ADALIMUMAB [Suspect]
     Active Substance: ADALIMUMAB
     Route: 058
  143. ERTAPENEM SODIUM [Suspect]
     Active Substance: ERTAPENEM SODIUM
     Indication: Product used for unknown indication
     Dosage: UNK
  144. ERTAPENEM SODIUM [Suspect]
     Active Substance: ERTAPENEM SODIUM
  145. ERTAPENEM SODIUM [Suspect]
     Active Substance: ERTAPENEM SODIUM
  146. ERTAPENEM SODIUM [Suspect]
     Active Substance: ERTAPENEM SODIUM
  147. ERTAPENEM SODIUM [Suspect]
     Active Substance: ERTAPENEM SODIUM
  148. SULFAMETHOXAZOLE [Suspect]
     Active Substance: SULFAMETHOXAZOLE
     Indication: Product used for unknown indication
     Dosage: UNK
  149. SULFAMETHOXAZOLE [Suspect]
     Active Substance: SULFAMETHOXAZOLE
  150. SULFAMETHOXAZOLE [Suspect]
     Active Substance: SULFAMETHOXAZOLE
  151. SULFAMETHOXAZOLE [Suspect]
     Active Substance: SULFAMETHOXAZOLE
  152. SULFAMETHOXAZOLE [Suspect]
     Active Substance: SULFAMETHOXAZOLE
  153. ATROPINE SULFATE\DIPHENOXYLATE HYDROCHLORIDE [Suspect]
     Active Substance: ATROPINE SULFATE\DIPHENOXYLATE HYDROCHLORIDE
     Indication: Product used for unknown indication
     Dosage: UNK
     Route: 048
  154. ATROPINE SULFATE\DIPHENOXYLATE HYDROCHLORIDE [Suspect]
     Active Substance: ATROPINE SULFATE\DIPHENOXYLATE HYDROCHLORIDE
     Route: 048
  155. ATROPINE SULFATE\DIPHENOXYLATE HYDROCHLORIDE [Suspect]
     Active Substance: ATROPINE SULFATE\DIPHENOXYLATE HYDROCHLORIDE
  156. CALCITRIOL\CALCIUM CARBONATE\ZINC [Suspect]
     Active Substance: CALCITRIOL\CALCIUM CARBONATE\ZINC
     Indication: Product used for unknown indication
     Dosage: UNK
     Route: 014
  157. CALCITRIOL\CALCIUM CARBONATE\ZINC [Suspect]
     Active Substance: CALCITRIOL\CALCIUM CARBONATE\ZINC
     Route: 014
  158. CALCITRIOL\CALCIUM CARBONATE\ZINC [Suspect]
     Active Substance: CALCITRIOL\CALCIUM CARBONATE\ZINC
     Route: 014
  159. REFRESH TEARS [Suspect]
     Active Substance: CARBOXYMETHYLCELLULOSE SODIUM
     Indication: Product used for unknown indication
     Dosage: UNK
     Route: 047
  160. REFRESH TEARS [Suspect]
     Active Substance: CARBOXYMETHYLCELLULOSE SODIUM
     Route: 047
  161. REFRESH TEARS [Suspect]
     Active Substance: CARBOXYMETHYLCELLULOSE SODIUM
     Route: 047
  162. ACETAMINOPHEN [Suspect]
     Active Substance: ACETAMINOPHEN
     Indication: Product used for unknown indication
     Dosage: NOT SPECIFIED
  163. ACETAMINOPHEN [Suspect]
     Active Substance: ACETAMINOPHEN
  164. FLUTICASONE FUROATE [Suspect]
     Active Substance: FLUTICASONE FUROATE
     Indication: Product used for unknown indication
     Dosage: SPRAY, METERED DOSE
  165. FLUTICASONE FUROATE [Suspect]
     Active Substance: FLUTICASONE FUROATE
  166. FLUTICASONE FUROATE [Suspect]
     Active Substance: FLUTICASONE FUROATE
  167. VITAMIN D3 [Suspect]
     Active Substance: CHOLECALCIFEROL
     Indication: Product used for unknown indication
     Dosage: UNK
  168. VITAMIN D3 [Suspect]
     Active Substance: CHOLECALCIFEROL
  169. XANTOFYL PALMITATE [Suspect]
     Active Substance: XANTOFYL PALMITATE
     Indication: Product used for unknown indication
     Dosage: UNK
  170. XANTOFYL PALMITATE [Suspect]
     Active Substance: XANTOFYL PALMITATE
  171. XANTOFYL PALMITATE [Suspect]
     Active Substance: XANTOFYL PALMITATE
  172. LUTEIN\ZEAXANTHIN [Suspect]
     Active Substance: LUTEIN\ZEAXANTHIN
     Indication: Product used for unknown indication
     Dosage: NOT SPECIFIED
  173. LUTEIN\ZEAXANTHIN [Suspect]
     Active Substance: LUTEIN\ZEAXANTHIN
  174. VALSARTAN [Concomitant]
     Active Substance: VALSARTAN
     Indication: Product used for unknown indication
     Dosage: UNK
  175. VALSARTAN [Concomitant]
     Active Substance: VALSARTAN
  176. VITAMIN D3 [Concomitant]
     Active Substance: CHOLECALCIFEROL
  177. ZEAXANTHIN FORTE [Concomitant]

REACTIONS (2)
  - Macular degeneration [Unknown]
  - Drug ineffective [Unknown]
